FAERS Safety Report 8392284-2 (Version None)
Quarter: 2012Q2

REPORT INFORMATION
  Report Type: 
  Country: None (occurrence: None)
  Receive Date: 20120529
  Receipt Date: 20120514
  Transmission Date: 20120825
  Serious: Yes (Other)
  Sender: FDA-Public Use
  Company Number: DE-ROCHE-1069854

PATIENT

DRUGS (4)
  1. IRINOTECAN HYDROCHLORIDE [Suspect]
     Indication: RECTAL CANCER
  2. CETUXIMAB [Suspect]
     Indication: RECTAL CANCER
  3. FLUOROURACIL [Suspect]
     Indication: RECTAL CANCER
  4. XELODA [Suspect]
     Indication: RECTAL CANCER
     Route: 048

REACTIONS (7)
  - DIARRHOEA [None]
  - CONSTIPATION [None]
  - MUCOUS STOOLS [None]
  - ABDOMINAL PAIN [None]
  - VOMITING [None]
  - HAEMATOCHEZIA [None]
  - NAUSEA [None]
